FAERS Safety Report 16810675 (Version 1)
Quarter: 2019Q3

REPORT INFORMATION
  Report Type: Spontaneous
  Country: US (occurrence: US)
  Receive Date: 20190916
  Receipt Date: 20190916
  Transmission Date: 20191005
  Serious: No
  Sender: FDA-Public Use
  Company Number: US-VERTEX PHARMACEUTICALS-2019-005771

PATIENT
  Age: 14 Year
  Sex: Female
  Weight: 60 kg

DRUGS (3)
  1. MIRALAX [Concomitant]
     Active Substance: POLYETHYLENE GLYCOL 3350
  2. DEPO-PROVERA [Suspect]
     Active Substance: MEDROXYPROGESTERONE ACETATE
     Indication: PRODUCT USED FOR UNKNOWN INDICATION
     Route: 065
  3. SYMDEKO [Suspect]
     Active Substance: IVACAFTOR\TEZACAFTOR
     Indication: CYSTIC FIBROSIS
     Dosage: TEZACAFTOR 100 MG, IVACAFTOR 150 MG QAM; IVACAFTOR 150 MG QPM
     Route: 048
     Dates: start: 20181204

REACTIONS (2)
  - Dyspepsia [Unknown]
  - Weight increased [Unknown]

NARRATIVE: CASE EVENT DATE: 2019
